FAERS Safety Report 17633250 (Version 1)
Quarter: 2020Q2

REPORT INFORMATION
  Report Type: Spontaneous
  Country: US (occurrence: US)
  Receive Date: 20200406
  Receipt Date: 20200406
  Transmission Date: 20200713
  Serious: No
  Sender: FDA-Public Use
  Company Number: US-ASTRAZENECA-2020SE39935

PATIENT
  Sex: Male

DRUGS (1)
  1. LOKELMA [Suspect]
     Active Substance: SODIUM ZIRCONIUM CYCLOSILICATE
     Indication: BLOOD POTASSIUM DECREASED
     Dosage: TWO TIMES A DAY
     Route: 048
     Dates: start: 20200303, end: 20200305

REACTIONS (2)
  - Migraine [Recovered/Resolved]
  - Blood pressure increased [Recovered/Resolved]
